FAERS Safety Report 11473478 (Version 1)
Quarter: 2015Q3

REPORT INFORMATION
  Report Type: Spontaneous
  Country: US (occurrence: US)
  Receive Date: 20150908
  Receipt Date: 20150908
  Transmission Date: 20151125
  Serious: Yes (Hospitalization, Other)
  Sender: FDA-Public Use
  Company Number: US-CONCORDIA PHARMACEUTICALS INC.-CO-PL-US-2015-205

PATIENT
  Age: 24 Year
  Sex: Female
  Weight: 122.9 kg

DRUGS (20)
  1. PLAQUENIL [Suspect]
     Active Substance: HYDROXYCHLOROQUINE SULFATE
     Indication: SYSTEMIC LUPUS ERYTHEMATOSUS
     Route: 048
  2. REMODULIN [Suspect]
     Active Substance: TREPROSTINIL
     Route: 058
  3. REMODULIN [Suspect]
     Active Substance: TREPROSTINIL
     Route: 058
  4. PREDNISONE. [Concomitant]
     Active Substance: PREDNISONE
     Indication: PRODUCT USED FOR UNKNOWN INDICATION
     Route: 065
  5. SIMETHICONE (DIMETHICONE) [Concomitant]
     Active Substance: DIMETHICONE
     Indication: PRODUCT USED FOR UNKNOWN INDICATION
     Route: 065
  6. TYLENOL [Concomitant]
     Active Substance: ACETAMINOPHEN
     Indication: PRODUCT USED FOR UNKNOWN INDICATION
     Route: 065
  7. XANAX [Concomitant]
     Active Substance: ALPRAZOLAM
     Indication: PRODUCT USED FOR UNKNOWN INDICATION
     Route: 065
  8. REMODULIN [Suspect]
     Active Substance: TREPROSTINIL
     Indication: COR PULMONALE CHRONIC
     Route: 058
     Dates: start: 20140522
  9. LETAIRIS [Suspect]
     Active Substance: AMBRISENTAN
     Indication: PULMONARY HYPERTENSION
     Route: 048
     Dates: start: 20140523
  10. RISPERDAL [Concomitant]
     Active Substance: RISPERIDONE
     Indication: PRODUCT USED FOR UNKNOWN INDICATION
     Route: 065
  11. REMODULIN [Suspect]
     Active Substance: TREPROSTINIL
     Indication: PULMONARY HYPERTENSION
     Route: 058
     Dates: start: 20140522
  12. ASPIRIN. [Concomitant]
     Active Substance: ASPIRIN
     Indication: PRODUCT USED FOR UNKNOWN INDICATION
     Route: 065
  13. NYSTATIN. [Concomitant]
     Active Substance: NYSTATIN
     Indication: PRODUCT USED FOR UNKNOWN INDICATION
     Route: 065
  14. LETAIRIS [Suspect]
     Active Substance: AMBRISENTAN
     Indication: SYSTEMIC LUPUS ERYTHEMATOSUS
  15. LETAIRIS [Suspect]
     Active Substance: AMBRISENTAN
     Indication: CONNECTIVE TISSUE DISORDER
  16. LASIX [Concomitant]
     Active Substance: FUROSEMIDE
     Indication: PRODUCT USED FOR UNKNOWN INDICATION
     Route: 065
  17. OMEPRAZOLE. [Concomitant]
     Active Substance: OMEPRAZOLE
     Indication: PRODUCT USED FOR UNKNOWN INDICATION
     Route: 065
  18. METOPROLOL [Concomitant]
     Active Substance: METOPROLOL
     Indication: PRODUCT USED FOR UNKNOWN INDICATION
     Route: 065
  19. PROTONIX [Concomitant]
     Active Substance: PANTOPRAZOLE SODIUM
     Indication: PRODUCT USED FOR UNKNOWN INDICATION
     Route: 065
  20. PROCHLORPERAZINE. [Concomitant]
     Active Substance: PROCHLORPERAZINE
     Indication: PRODUCT USED FOR UNKNOWN INDICATION
     Route: 065

REACTIONS (29)
  - Vomiting [Recovering/Resolving]
  - Acute prerenal failure [Recovered/Resolved]
  - Pancytopenia [Unknown]
  - Hypokalaemia [Unknown]
  - Nausea [Recovering/Resolving]
  - Infusion site infection [Recovering/Resolving]
  - Thrombocytopenia [Recovering/Resolving]
  - Infusion site swelling [Recovering/Resolving]
  - Rash [Recovered/Resolved]
  - Abdominal pain [Recovered/Resolved]
  - Malaise [Recovered/Resolved]
  - Infusion site warmth [Unknown]
  - Impaired healing [Recovering/Resolving]
  - Pyrexia [Recovered/Resolved]
  - Diarrhoea [Recovered/Resolved]
  - Infusion site erythema [Recovering/Resolving]
  - Infusion site pain [Recovered/Resolved]
  - Trichomoniasis [Unknown]
  - Gastroenteritis [Recovered/Resolved]
  - Infusion site haematoma [Recovering/Resolving]
  - Infusion site haemorrhage [Recovering/Resolving]
  - Retroperitoneal lymphadenopathy [Unknown]
  - Dehydration [Recovered/Resolved]
  - Injection site discharge [Recovered/Resolved]
  - Dizziness [Unknown]
  - Blood folate decreased [Unknown]
  - Hypotension [Recovered/Resolved]
  - Pancreatitis acute [Recovered/Resolved]
  - Urinary tract infection [Recovered/Resolved]

NARRATIVE: CASE EVENT DATE: 2014
